FAERS Safety Report 6016575-5 (Version None)
Quarter: 2008Q4

REPORT INFORMATION
  Report Type: 
  Country: None (occurrence: None)
  Receive Date: 20081222
  Receipt Date: 20081210
  Transmission Date: 20090506
  Serious: Yes (Hospitalization, Other)
  Sender: FDA-Public Use
  Company Number: PHHY2008FR31687

PATIENT
  Sex: Female

DRUGS (4)
  1. NEORAL [Suspect]
     Indication: AUTOIMMUNE HEPATITIS
     Dosage: 50 MG, QD
     Route: 048
     Dates: end: 20080827
  2. AUGMENTIN '125' [Suspect]
     Indication: OROPHARYNGEAL PAIN
     Dosage: UNK
     Route: 048
     Dates: end: 20080901
  3. IMUREL [Suspect]
     Indication: AUTOIMMUNE HEPATITIS
     Dosage: 25 MG, QD
     Route: 048
     Dates: end: 20080827
  4. DELURSAN [Suspect]
     Indication: CHOLESTASIS
     Dosage: 500 MG, QD
     Route: 048
     Dates: end: 20080815

REACTIONS (6)
  - ANAEMIA MACROCYTIC [None]
  - INFLAMMATION [None]
  - JAUNDICE [None]
  - LEUKOPENIA [None]
  - PRURITUS [None]
  - PURPURA [None]
